FAERS Safety Report 13385005 (Version 1)
Quarter: 2017Q1

REPORT INFORMATION
  Report Type: Spontaneous
  Country: US (occurrence: US)
  Receive Date: 20170330
  Receipt Date: 20170330
  Transmission Date: 20170429
  Serious: Yes (Other)
  Sender: FDA-Public Use
  Company Number: None

PATIENT
  Age: 50 Year
  Sex: Female
  Weight: 126 kg

DRUGS (3)
  1. ABILIFY [Suspect]
     Active Substance: ARIPIPRAZOLE
     Indication: BIPOLAR DISORDER
     Dosage: ?          QUANTITY:1 TABLET(S);?
     Route: 048
     Dates: start: 20031001, end: 20160720
  2. HALOPERIDOL. [Concomitant]
     Active Substance: HALOPERIDOL
  3. ZOLOFT [Concomitant]
     Active Substance: SERTRALINE HYDROCHLORIDE

REACTIONS (6)
  - Weight increased [None]
  - Food craving [None]
  - Libido increased [None]
  - Gambling [None]
  - Depression [None]
  - Self esteem decreased [None]

NARRATIVE: CASE EVENT DATE: 20031001
